FAERS Safety Report 14300539 (Version 1)
Quarter: 2017Q4

REPORT INFORMATION
  Report Type: Spontaneous
  Country: US (occurrence: US)
  Receive Date: 20171219
  Receipt Date: 20171219
  Transmission Date: 20180321
  Serious: No
  Sender: FDA-Public Use
  Company Number: US-ELI_LILLY_AND_COMPANY-US201712006464

PATIENT
  Age: 74 Year
  Sex: Female
  Weight: 106.9 kg

DRUGS (6)
  1. HUMULIN NOS [Suspect]
     Active Substance: INSULIN HUMAN
     Dosage: 19 U, EACH MORNING
     Route: 058
  2. ESTRADIOL. [Suspect]
     Active Substance: ESTRADIOL
     Indication: PRODUCT USED FOR UNKNOWN INDICATION
     Dosage: UNK, UNKNOWN
     Route: 065
     Dates: end: 2015
  3. HUMULIN NOS [Suspect]
     Active Substance: INSULIN HUMAN
     Dosage: 21 U, EACH EVENING
     Route: 058
  4. HUMULIN NOS [Suspect]
     Active Substance: INSULIN HUMAN
     Dosage: 21 U, EACH EVENING
     Route: 058
  5. HUMULIN NOS [Suspect]
     Active Substance: INSULIN HUMAN
     Dosage: 19 U, EACH MORNING
     Route: 058
  6. HUMULIN NOS [Suspect]
     Active Substance: INSULIN HUMAN
     Indication: TYPE 2 DIABETES MELLITUS
     Dosage: 19 U, EACH MORNING
     Route: 058

REACTIONS (5)
  - Ankle fracture [Recovered/Resolved]
  - Weight increased [Unknown]
  - Intentional product misuse [Unknown]
  - Blood glucose abnormal [Recovered/Resolved]
  - Swelling [Unknown]

NARRATIVE: CASE EVENT DATE: 2015
